FAERS Safety Report 7331383-0 (Version None)
Quarter: 2011Q1

REPORT INFORMATION
  Report Type: 
  Country: None (occurrence: None)
  Receive Date: 20110304
  Receipt Date: 20110228
  Transmission Date: 20110831
  Serious: Yes (Hospitalization, Other)
  Sender: FDA-Public Use
  Company Number: US-PFIZER INC-2005092321

PATIENT
  Sex: Male

DRUGS (3)
  1. NEURONTIN [Suspect]
     Indication: BIPOLAR DISORDER
     Dosage: 800 MG, UNK
     Dates: start: 20010101, end: 20020101
  2. NEURONTIN [Suspect]
     Dosage: 800 MG, UNK
     Dates: start: 20021111, end: 20030514
  3. NEURONTIN [Suspect]
     Dosage: UNK
     Dates: start: 20030317, end: 20030517

REACTIONS (6)
  - MANIA [None]
  - SUICIDE ATTEMPT [None]
  - DEPRESSION [None]
  - DISTURBANCE IN SOCIAL BEHAVIOUR [None]
  - EXCORIATION [None]
  - DRUG INEFFECTIVE [None]
